FAERS Safety Report 6376697-6 (Version None)
Quarter: 2009Q3

REPORT INFORMATION
  Report Type: 
  Country: None (occurrence: None)
  Receive Date: 20090925
  Receipt Date: 20090917
  Transmission Date: 20100115
  Serious: Yes (Death)
  Sender: FDA-Public Use
  Company Number: US-ROCHE-657365

PATIENT
  Sex: Male
  Weight: 103.4 kg

DRUGS (1)
  1. CAPECITABINE [Suspect]
     Indication: HEAD AND NECK CANCER
     Route: 048
     Dates: start: 20090520

REACTIONS (1)
  - DEATH [None]
